FAERS Safety Report 19269241 (Version 1)
Quarter: 2021Q2

REPORT INFORMATION
  Report Type: Spontaneous
  Country: None (occurrence: US)
  Receive Date: 20210517
  Receipt Date: 20210517
  Transmission Date: 20210717
  Serious: No
  Sender: FDA-Public Use
  Company Number: US-MEDICURE INC.-2110637

PATIENT
  Age: 43 Year
  Sex: Female

DRUGS (1)
  1. ZYPITAMAG [Suspect]
     Active Substance: PITAVASTATIN

REACTIONS (1)
  - Hypersensitivity [Unknown]
